FAERS Safety Report 13843966 (Version 1)
Quarter: 2017Q3

REPORT INFORMATION
  Report Type: Other
  Country: GB (occurrence: GB)
  Receive Date: 20170808
  Receipt Date: 20170808
  Transmission Date: 20171127
  Serious: Yes (Hospitalization, Other)
  Sender: FDA-Public Use
  Company Number: GB-COVIS PHARMA B.V.-2017COV00160

PATIENT
  Age: 20 Year
  Sex: Male
  Weight: 101 kg

DRUGS (1)
  1. PRILOSEC [Suspect]
     Active Substance: OMEPRAZOLE MAGNESIUM
     Indication: ABDOMINAL PAIN UPPER
     Dosage: 20 MG, 2X/DAY
     Route: 048
     Dates: start: 20170623, end: 20170712

REACTIONS (23)
  - Off label use [Recovered/Resolved]
  - Paraesthesia [Recovering/Resolving]
  - Tremor [Recovering/Resolving]
  - Diarrhoea [Recovering/Resolving]
  - Nausea [Recovering/Resolving]
  - Dyspnoea [Recovering/Resolving]
  - Asthenia [Recovering/Resolving]
  - Anxiety [Recovered/Resolved]
  - Somnolence [Recovering/Resolving]
  - Ear pain [Not Recovered/Not Resolved]
  - Muscular weakness [Recovered/Resolved]
  - Chest pain [Unknown]
  - Hypoaesthesia [Recovering/Resolving]
  - Insomnia [Recovering/Resolving]
  - Cough [Recovering/Resolving]
  - Neck pain [Recovered/Resolved]
  - Headache [Recovering/Resolving]
  - Malaise [Not Recovered/Not Resolved]
  - Back pain [Recovered/Resolved]
  - Dizziness [Recovering/Resolving]
  - Confusional state [Recovered/Resolved]
  - Apathy [Recovering/Resolving]
  - Musculoskeletal pain [Recovered/Resolved]

NARRATIVE: CASE EVENT DATE: 2017
